FAERS Safety Report 8442156-X (Version None)
Quarter: 2012Q2

REPORT INFORMATION
  Report Type: 
  Country: None (occurrence: None)
  Receive Date: 20120615
  Receipt Date: 20120214
  Transmission Date: 20120825
  Serious: No
  Sender: FDA-Public Use
  Company Number: US-NOVEN-12US004104

PATIENT
  Sex: Female
  Weight: 19.048 kg

DRUGS (2)
  1. DAYTRANA [Suspect]
     Dosage: 30 MG, QD
     Route: 062
  2. DAYTRANA [Suspect]
     Indication: ATTENTION DEFICIT/HYPERACTIVITY DISORDER
     Dosage: 50 MG (20MG + 30MG)
     Route: 062

REACTIONS (7)
  - GROWTH RETARDATION [None]
  - AGGRESSION [None]
  - FALL [None]
  - CONCUSSION [None]
  - ALTERED STATE OF CONSCIOUSNESS [None]
  - DRUG PRESCRIBING ERROR [None]
  - WRONG TECHNIQUE IN DRUG USAGE PROCESS [None]
